FAERS Safety Report 9795957 (Version 1)
Quarter: 2014Q1

REPORT INFORMATION
  Report Type: Report from Study
  Country: CA (occurrence: CA)
  Receive Date: 20140103
  Receipt Date: 20140103
  Transmission Date: 20141002
  Serious: Yes (Life-Threatening)
  Sender: FDA-Public Use
  Company Number: CA-JNJFOC-20140100576

PATIENT
  Age: 53 Year
  Sex: Female
  Weight: 136 kg

DRUGS (9)
  1. REMICADE [Suspect]
     Indication: CROHN^S DISEASE
     Dosage: 2 WEEKS
     Route: 042
     Dates: start: 20131216, end: 20131230
  2. RAMIPRIL [Concomitant]
     Route: 048
  3. CLONAZEPAM [Concomitant]
     Dosage: AT BED TIME
     Route: 048
  4. TRAZODONE [Concomitant]
     Dosage: 1-2 AT BED TIME
     Route: 048
  5. NAPROXEN [Concomitant]
     Dosage: AS DIRECTED
     Route: 065
  6. SPIRIVA [Concomitant]
     Dosage: AS DIRECTED
     Route: 065
  7. TYLENOL [Concomitant]
     Indication: PREMEDICATION
     Route: 048
  8. BENADRYL [Concomitant]
     Indication: PREMEDICATION
     Route: 042
  9. SOLUCORTEF [Concomitant]
     Indication: PREMEDICATION
     Route: 042

REACTIONS (11)
  - Oxygen saturation decreased [Not Recovered/Not Resolved]
  - Respiratory rate increased [Not Recovered/Not Resolved]
  - Infusion related reaction [Not Recovered/Not Resolved]
  - Tachycardia [Not Recovered/Not Resolved]
  - Dyspnoea [Not Recovered/Not Resolved]
  - Flushing [Not Recovered/Not Resolved]
  - Urticaria [Not Recovered/Not Resolved]
  - Cough [Not Recovered/Not Resolved]
  - Throat tightness [Not Recovered/Not Resolved]
  - Chest discomfort [Not Recovered/Not Resolved]
  - Hypotension [Not Recovered/Not Resolved]
